FAERS Safety Report 10092075 (Version 1)
Quarter: 2014Q2

REPORT INFORMATION
  Report Type: Spontaneous
  Country: JP (occurrence: JP)
  Receive Date: 20140421
  Receipt Date: 20140421
  Transmission Date: 20141212
  Serious: Yes (Life-Threatening, Other)
  Sender: FDA-Public Use
  Company Number: JP-ABBVIE-14P-087-1226895-00

PATIENT
  Age: 52 Year
  Sex: Male

DRUGS (11)
  1. SODIUM VALPROATE [Suspect]
     Indication: BIPOLAR DISORDER
     Route: 048
  2. SODIUM VALPROATE [Suspect]
     Route: 048
  3. OLANZAPINE [Concomitant]
     Indication: PRODUCT USED FOR UNKNOWN INDICATION
  4. ZOPICLONE [Concomitant]
     Indication: PRODUCT USED FOR UNKNOWN INDICATION
  5. NIFEDIPINE [Concomitant]
     Indication: PRODUCT USED FOR UNKNOWN INDICATION
  6. AROTINOLOL HYDROCHLORIDE [Concomitant]
     Indication: PRODUCT USED FOR UNKNOWN INDICATION
  7. VALSARTAN [Concomitant]
     Indication: PRODUCT USED FOR UNKNOWN INDICATION
  8. DOXAZOSIN MESILATE [Concomitant]
     Indication: HYPERTENSION
  9. SODIUM POLYSTYRENE SULFONATE [Concomitant]
     Indication: HYPERKALAEMIA
  10. ALLOPURINOL [Concomitant]
     Indication: HYPERURICAEMIA
  11. ALFACALCIDOL [Concomitant]
     Indication: RENAL FAILURE CHRONIC

REACTIONS (6)
  - Pancreatitis acute [Recovering/Resolving]
  - Abdominal pain [Unknown]
  - Amylase increased [Unknown]
  - C-reactive protein increased [Unknown]
  - Lipase increased [Unknown]
  - White blood cell count increased [Unknown]
